FAERS Safety Report 5171377-7 (Version None)
Quarter: 2006Q4

REPORT INFORMATION
  Report Type: 
  Country: None (occurrence: None)
  Receive Date: 20061208
  Receipt Date: 20061208
  Transmission Date: 20070319
  Serious: Yes (Life-Threatening)
  Sender: FDA-Public Use
  Company Number: None

PATIENT
  Age: 68 Year
  Sex: Female
  Weight: 72.5755 kg

DRUGS (1)
  1. ZEGERID [Suspect]
     Indication: DYSPEPSIA
     Dosage: 1 PAC IN H20 DAILY

REACTIONS (4)
  - DYSPNOEA [None]
  - HYPERHIDROSIS [None]
  - OEDEMA PERIPHERAL [None]
  - SYNCOPE [None]
